FAERS Safety Report 9332034 (Version 2)
Quarter: 2014Q1

REPORT INFORMATION
  Report Type: Spontaneous
  Country: US (occurrence: US)
  Receive Date: 20130605
  Receipt Date: 20140207
  Transmission Date: 20141002
  Serious: Yes (Hospitalization)
  Sender: FDA-Public Use
  Company Number: US-B.I. PHARMACEUTICALS,INC./RIDGEFIELD-2013-BI-15635BP

PATIENT
  Age: 62 Year
  Sex: Male
  Weight: 56 kg

DRUGS (5)
  1. SPIRIVA [Suspect]
     Indication: CHRONIC OBSTRUCTIVE PULMONARY DISEASE
     Dosage: 18 MCG
     Route: 055
     Dates: start: 20120621
  2. ACID ACETYLSALICYLIC (ACETYLSALICYLIC ACID ) [Concomitant]
     Indication: ANGINA PECTORIS
     Dosage: 125 MG
     Route: 048
     Dates: start: 201206
  3. ISOSORBIDE MONONITRATE (ISOSORBIDE MONONITRATE) [Concomitant]
     Indication: ANGINA PECTORIS
     Dosage: 20 MG
     Route: 048
     Dates: start: 201206
  4. SYMBICORT (BUDESONIDE, FORMOTEROL FUMARATE) [Concomitant]
     Indication: CHRONIC OBSTRUCTIVE PULMONARY DISEASE
     Dosage: DAILY DOSE: 4.5/160 MCG, RESPIRATORY INHALATION
     Route: 055
     Dates: start: 20120621
  5. VENTOLIN (ALBUTEROL) [Concomitant]
     Indication: CHRONIC OBSTRUCTIVE PULMONARY DISEASE
     Dosage: 100 MCG
     Route: 055
     Dates: start: 20120621

REACTIONS (1)
  - Pneumonia [Recovered/Resolved]
